FAERS Safety Report 18650579 (Version 1)
Quarter: 2020Q4

REPORT INFORMATION
  Report Type: Spontaneous
  Country: US (occurrence: US)
  Receive Date: 20201222
  Receipt Date: 20201222
  Transmission Date: 20210114
  Serious: Yes (Other)
  Sender: FDA-Public Use
  Company Number: US-PURDUE-USA-2020-0187293

PATIENT
  Sex: Female

DRUGS (1)
  1. OXYCONTIN [Suspect]
     Active Substance: OXYCODONE HYDROCHLORIDE
     Indication: NECK SURGERY
     Dosage: 470 MG, DAILY
     Route: 048
     Dates: start: 1999

REACTIONS (5)
  - Drug dependence [Unknown]
  - Pruritus [Unknown]
  - Scar [Unknown]
  - Confusional state [Unknown]
  - Disorientation [Unknown]
